FAERS Safety Report 11311216 (Version 2)
Quarter: 2015Q3

REPORT INFORMATION
  Report Type: Spontaneous
  Country: IN (occurrence: None)
  Receive Date: 20150723
  Receipt Date: 20150901
  Transmission Date: 20151125
  Serious: Yes (Other)
  Sender: FDA-Public Use
  Company Number: IN-2015VAL000476

PATIENT
  Age: 60 Year
  Sex: Male

DRUGS (9)
  1. GLIMEPIRID [Concomitant]
     Active Substance: GLIMEPIRIDE
  2. AMIODARONE (NGX) /00133102/(AMIODARONE HYDROCHLORIDE) TABLET [Suspect]
     Active Substance: AMIODARONE
     Indication: PRODUCT USED FOR UNKNOWN INDICATION
     Route: 048
  3. ATENOLOL. [Concomitant]
     Active Substance: ATENOLOL
  4. METFORMIN [Concomitant]
     Active Substance: METFORMIN HYDROCHLORIDE
  5. FLECAINIDE (NGX) (FLECAINIDE) [Suspect]
     Active Substance: FLECAINIDE
     Indication: ATRIAL FLUTTER
     Dosage: MORNING
  6. ATORVASTATIN [Concomitant]
     Active Substance: ATORVASTATIN
  7. METOPROLOL TARTRATE (METOPROLOL TARTRATE) UNKNOWN [Suspect]
     Active Substance: METOPROLOL TARTRATE
     Indication: ATRIAL FLUTTER
  8. ASPIRIN (ACETYLSALICYLIC ACID) [Concomitant]
     Active Substance: ASPIRIN
  9. DILTIAZEM (NGX) (DILTIAZEM) TABLET [Suspect]
     Active Substance: DILTIAZEM
     Indication: ATRIAL FLUTTER

REACTIONS (5)
  - Atrioventricular block first degree [None]
  - Syncope [None]
  - Drug interaction [None]
  - Blood thyroid stimulating hormone increased [None]
  - Dyspnoea [None]
